FAERS Safety Report 14144491 (Version 1)
Quarter: 2017Q4

REPORT INFORMATION
  Report Type: Spontaneous
  Country: TR (occurrence: TR)
  Receive Date: 20171031
  Receipt Date: 20171031
  Transmission Date: 20180321
  Serious: Yes (Life-Threatening, Hospitalization, Other)
  Sender: FDA-Public Use
  Company Number: TR-SUN PHARMACEUTICAL INDUSTRIES LTD-2017R1-131617

PATIENT
  Age: 38 Year
  Sex: Female

DRUGS (1)
  1. METHOTREXATE. [Suspect]
     Active Substance: METHOTREXATE
     Indication: ECTOPIC PREGNANCY
     Dosage: UNK
     Route: 065

REACTIONS (6)
  - Rash macular [Recovered/Resolved]
  - Diarrhoea haemorrhagic [Recovered/Resolved]
  - Cytopenia [Recovered/Resolved]
  - Toxicity to various agents [Recovered/Resolved]
  - Pelvic pain [Recovered/Resolved]
  - Stomatitis [Recovered/Resolved]
